FAERS Safety Report 9236094 (Version 1)
Quarter: 2013Q2

REPORT INFORMATION
  Report Type: Spontaneous
  Country: FR (occurrence: FR)
  Receive Date: 20130417
  Receipt Date: 20130417
  Transmission Date: 20140414
  Serious: Yes (Hospitalization, Other)
  Sender: FDA-Public Use
  Company Number: FR-AMGEN-FRASP2013026739

PATIENT
  Age: 59 Year
  Sex: Female
  Weight: 95 kg

DRUGS (2)
  1. ENBREL [Suspect]
     Indication: PRODUCT USED FOR UNKNOWN INDICATION
     Dosage: 50 MG, WEEKLY
     Route: 058
     Dates: start: 20090301, end: 20130214
  2. METHOTREXATE [Concomitant]
     Indication: RHEUMATIC DISORDER
     Dosage: UNK
     Dates: end: 201006

REACTIONS (3)
  - Diabetes mellitus [Unknown]
  - Bleeding varicose vein [Recovered/Resolved]
  - Cardiac failure [Not Recovered/Not Resolved]
